FAERS Safety Report 4927511-4 (Version None)
Quarter: 2006Q1

REPORT INFORMATION
  Report Type: 
  Country: None (occurrence: None)
  Receive Date: 20060228
  Receipt Date: 20050801
  Transmission Date: 20060701
  Serious: Yes (Hospitalization)
  Sender: FDA-Public Use
  Company Number: US-MERCK-0508USA00877

PATIENT
  Age: 73 Year
  Sex: Male

DRUGS (1)
  1. VIOXX [Suspect]
     Route: 048
     Dates: start: 20011008

REACTIONS (12)
  - ACCIDENT [None]
  - ACUTE MYOCARDIAL INFARCTION [None]
  - ANXIETY [None]
  - ASTHMA [None]
  - BLOOD PRESSURE INCREASED [None]
  - BRONCHITIS [None]
  - CHRONIC OBSTRUCTIVE PULMONARY DISEASE [None]
  - CORONARY ARTERY OCCLUSION [None]
  - HYPERLIPIDAEMIA [None]
  - INSOMNIA [None]
  - MUSCULOSKELETAL CHEST PAIN [None]
  - PNEUMONIA [None]
